FAERS Safety Report 13391971 (Version 1)
Quarter: 2017Q1

REPORT INFORMATION
  Report Type: Spontaneous
  Country: RU (occurrence: RU)
  Receive Date: 20170331
  Receipt Date: 20170331
  Transmission Date: 20170429
  Serious: Yes (Life-Threatening)
  Sender: FDA-Public Use
  Company Number: RU-BIOMARINAP-RU-2017-112920

PATIENT
  Age: 13 Year
  Sex: Male
  Weight: 37 kg

DRUGS (1)
  1. NAGLAZYME [Suspect]
     Active Substance: GALSULFASE
     Indication: MUCOPOLYSACCHARIDOSIS VI
     Dosage: UNK, QW
     Route: 042
     Dates: start: 20151215

REACTIONS (1)
  - Myelocyte percentage increased [Not Recovered/Not Resolved]

NARRATIVE: CASE EVENT DATE: 20170217
